FAERS Safety Report 14364731 (Version 1)
Quarter: 2018Q1

REPORT INFORMATION
  Report Type: Spontaneous
  Country: US (occurrence: US)
  Receive Date: 20180106
  Receipt Date: 20180106
  Transmission Date: 20180509
  Serious: Yes (Disabling)
  Sender: FDA-Public Use
  Company Number: None

PATIENT
  Age: 64 Year
  Sex: Female
  Weight: 60.75 kg

DRUGS (6)
  1. LOSARTAN (GENERIC COZAAR) [Suspect]
     Active Substance: LOSARTAN
     Indication: HYPERTENSION
     Dosage: ?          QUANTITY:1 TABLET(S);?
     Route: 048
     Dates: start: 20150601, end: 20180102
  2. MULTI VITAMIN [Concomitant]
     Active Substance: VITAMINS
  3. VALERIAN EXTRACT [Concomitant]
     Active Substance: VALERIAN EXTRACT
  4. TUMERIC [Concomitant]
     Active Substance: HERBALS\TURMERIC
  5. CALCIUM [Concomitant]
     Active Substance: CALCIUM
  6. VITAMIN D3 [Concomitant]
     Active Substance: CHOLECALCIFEROL

REACTIONS (6)
  - Osteoporosis [None]
  - Drug effect decreased [None]
  - Therapy change [None]
  - Product label issue [None]
  - Compression fracture [None]
  - Thoracic vertebral fracture [None]

NARRATIVE: CASE EVENT DATE: 20171108
